FAERS Safety Report 5989755-2 (Version None)
Quarter: 2008Q4

REPORT INFORMATION
  Report Type: 
  Country: None (occurrence: None)
  Receive Date: 20081209
  Receipt Date: 20081203
  Transmission Date: 20090506
  Serious: Yes (Death)
  Sender: FDA-Public Use
  Company Number: CERZ-1000446

PATIENT
  Age: 5 Year
  Sex: Male

DRUGS (1)
  1. CEREZYME [Suspect]
     Indication: GAUCHER'S DISEASE
     Dosage: 600 U, Q2W, INTRAVENOUS
     Route: 042
     Dates: start: 20041102, end: 20081203

REACTIONS (6)
  - CONVULSION [None]
  - DYSPNOEA [None]
  - INFLUENZA [None]
  - PNEUMONIA [None]
  - PNEUMONIA ASPIRATION [None]
  - VARICELLA [None]
